FAERS Safety Report 17475916 (Version 1)
Quarter: 2020Q1

REPORT INFORMATION
  Report Type: Spontaneous
  Country: GB (occurrence: GB)
  Receive Date: 20200228
  Receipt Date: 20200228
  Transmission Date: 20200409
  Serious: Yes (Life-Threatening, Hospitalization)
  Sender: FDA-Public Use
  Company Number: GB-MYLANLABS-2020M1021068

PATIENT
  Age: 15 Year
  Sex: Male
  Weight: 40 kg

DRUGS (11)
  1. CETIRIZINE [Concomitant]
     Active Substance: CETIRIZINE HYDROCHLORIDE
     Dosage: UNK
  2. GABAPENTIN. [Suspect]
     Active Substance: GABAPENTIN
     Indication: ANALGESIC THERAPY
     Dosage: 350 MILLIGRAM, QD ROUTE IS PEG.
     Dates: start: 20191130
  3. CLOBAZAM. [Concomitant]
     Active Substance: CLOBAZAM
     Dosage: UNK
  4. COLISTIMETHATE                     /00013206/ [Concomitant]
     Dosage: UNK
  5. HYOSCINE HYDROBROMIDE [Concomitant]
     Active Substance: SCOPOLAMINE HYDROBROMIDE
     Dosage: UNK
  6. OMEPRAZOLE. [Concomitant]
     Active Substance: OMEPRAZOLE
     Dosage: UNK
  7. LEVETIRACETAM. [Concomitant]
     Active Substance: LEVETIRACETAM
     Dosage: UNK
  8. GABAPENTIN. [Suspect]
     Active Substance: GABAPENTIN
     Dosage: 700 MILLIGRAM, QD ROUTE IS PEG.
     Dates: start: 20191229
  9. BACLOFEN. [Concomitant]
     Active Substance: BACLOFEN
     Dosage: UNK
  10. TOPIRAMATE. [Concomitant]
     Active Substance: TOPIRAMATE
     Dosage: UNK
  11. COLECALCIFEROL [Concomitant]
     Active Substance: CHOLECALCIFEROL
     Dosage: UNK

REACTIONS (2)
  - Somnolence [Recovered/Resolved]
  - Respiratory rate decreased [Recovered/Resolved]

NARRATIVE: CASE EVENT DATE: 20191225
